FAERS Safety Report 9009641 (Version 2)
Quarter: 2013Q1

REPORT INFORMATION
  Report Type: Spontaneous
  Country: GB (occurrence: GB)
  Receive Date: 20130110
  Receipt Date: 20130125
  Transmission Date: 20140127
  Serious: Yes (Hospitalization, Other)
  Sender: FDA-Public Use
  Company Number: GB-PFIZER INC-2013008645

PATIENT
  Age: 46 Year
  Sex: Female

DRUGS (1)
  1. RELPAX [Suspect]
     Indication: MIGRAINE
     Dosage: 40MG UNIT DOSE

REACTIONS (9)
  - Anaphylactic shock [Unknown]
  - Hypersensitivity [Unknown]
  - Apparent death [Unknown]
  - Dyspnoea [Unknown]
  - Cold sweat [Unknown]
  - Chest pain [Unknown]
  - Speech disorder [Unknown]
  - Food allergy [Unknown]
  - Dermatitis contact [Unknown]
